FAERS Safety Report 8152612-X (Version None)
Quarter: 2012Q1

REPORT INFORMATION
  Report Type: 
  Country: None (occurrence: None)
  Receive Date: 20120221
  Receipt Date: 20120217
  Transmission Date: 20120608
  Serious: Yes (Life-Threatening, Hospitalization, Other)
  Sender: FDA-Public Use
  Company Number: US-BAYER-200938579NA

PATIENT
  Age: 27 Year
  Sex: Female
  Weight: 81.633 kg

DRUGS (7)
  1. ANTIBIOTICS [Concomitant]
     Indication: PRODUCT USED FOR UNKNOWN INDICATION
     Route: 065
     Dates: start: 20090930
  2. ACETAMINOPHEN W/ CODEINE [Concomitant]
     Dosage: 1 TO 2 TABLETS
     Route: 048
  3. YAZ [Suspect]
     Route: 048
     Dates: start: 20090504, end: 20090903
  4. YASMIN [Suspect]
  5. ACETAMINOPHEN [Concomitant]
     Indication: PAIN
     Route: 065
     Dates: start: 20090930
  6. SERTRALINE HYDROCHLORIDE [Concomitant]
     Route: 048
  7. AZITHROMYCIN [Concomitant]
     Dosage: TO 6 HOURS PER NEED
     Route: 065

REACTIONS (11)
  - PULMONARY EMBOLISM [None]
  - PULMONARY INFARCTION [None]
  - FATIGUE [None]
  - HYPOKALAEMIA [None]
  - ASTHENIA [None]
  - DYSPNOEA [None]
  - PULMONARY HAEMORRHAGE [None]
  - HYPOAESTHESIA [None]
  - PARAESTHESIA [None]
  - CHEST PAIN [None]
  - DIZZINESS [None]
